FAERS Safety Report 9071941 (Version 1)
Quarter: 2013Q1

REPORT INFORMATION
  Report Type: Spontaneous
  Country: BD (occurrence: BD)
  Receive Date: 20130129
  Receipt Date: 20130129
  Transmission Date: 20140127
  Serious: Yes (Other)
  Sender: FDA-Public Use
  Company Number: PHHY2013BD007580

PATIENT
  Age: 103 Year
  Sex: Male

DRUGS (1)
  1. ACLASTA [Suspect]
     Indication: OSTEOPOROSIS
     Dosage: UNK UKN, UNK YEARLY
     Route: 042
     Dates: start: 20121202

REACTIONS (5)
  - General physical health deterioration [Not Recovered/Not Resolved]
  - Paralysis [Unknown]
  - Hypotension [Unknown]
  - Hypophagia [Unknown]
  - Pain [Unknown]
